FAERS Safety Report 9337970 (Version 1)
Quarter: 2013Q2

REPORT INFORMATION
  Report Type: Spontaneous
  Country: US (occurrence: US)
  Receive Date: 20130609
  Receipt Date: 20130609
  Transmission Date: 20140414
  Serious: Yes (Other)
  Sender: FDA-Public Use
  Company Number: US-SANOFI-AVENTIS-2013SA057190

PATIENT
  Sex: Female

DRUGS (2)
  1. PLAVIX [Suspect]
  2. LASIX [Concomitant]

REACTIONS (7)
  - Parkinson^s disease [Unknown]
  - Hypertension [Unknown]
  - Joint swelling [Unknown]
  - Heart rate increased [Unknown]
  - Dyspnoea [Unknown]
  - Contusion [Unknown]
  - Skin discolouration [Unknown]
